FAERS Safety Report 6315036-3 (Version None)
Quarter: 2009Q3

REPORT INFORMATION
  Report Type: 
  Country: None (occurrence: None)
  Receive Date: 20090819
  Receipt Date: 20090807
  Transmission Date: 20100115
  Serious: Yes (Other)
  Sender: FDA-Public Use
  Company Number: GB-ROCHE-649874

PATIENT
  Age: 21 Year
  Sex: Female

DRUGS (4)
  1. TAMIFLU [Suspect]
     Indication: DRUG USE FOR UNKNOWN INDICATION
     Route: 065
     Dates: start: 20090721, end: 20090724
  2. SALBUTAMOL [Concomitant]
  3. CO-DYDRAMOL [Concomitant]
  4. CEFADROXIL [Concomitant]

REACTIONS (1)
  - HALLUCINATION [None]
